FAERS Safety Report 11620754 (Version 1)
Quarter: 2015Q4

REPORT INFORMATION
  Report Type: Report from Study
  Country: US (occurrence: US)
  Receive Date: 20151012
  Receipt Date: 20151012
  Transmission Date: 20160304
  Serious: Yes (Hospitalization)
  Sender: FDA-Public Use
  Company Number: US-PFIZER INC-2015245018

PATIENT
  Age: 14 Year
  Sex: Male
  Weight: 62 kg

DRUGS (1)
  1. DESVENLAFAXINE SUCCINATE MONOHYDRATE [Suspect]
     Active Substance: DESVENLAFAXINE
     Indication: MAJOR DEPRESSION
     Dosage: BLINDED THERAPY, 1X/DAY
     Route: 048
     Dates: start: 20150320, end: 20150502

REACTIONS (1)
  - Homicidal ideation [Recovered/Resolved]

NARRATIVE: CASE EVENT DATE: 20150504
